FAERS Safety Report 8173087-0 (Version None)
Quarter: 2012Q1

REPORT INFORMATION
  Report Type: 
  Country: None (occurrence: None)
  Receive Date: 20120229
  Receipt Date: 20120220
  Transmission Date: 20120608
  Serious: Yes (Hospitalization)
  Sender: FDA-Public Use
  Company Number: FR-JNJFOC-20120210983

PATIENT
  Age: 58 Year
  Sex: Female

DRUGS (2)
  1. REMICADE [Suspect]
     Indication: CROHN'S DISEASE
     Route: 042
     Dates: start: 20070101
  2. REMICADE [Suspect]
     Dosage: LAST INFUSION
     Route: 042
     Dates: start: 20111027, end: 20111027

REACTIONS (2)
  - RECTAL HAEMORRHAGE [None]
  - CYTOLYTIC HEPATITIS [None]
